FAERS Safety Report 7487736-3 (Version None)
Quarter: 2011Q2

REPORT INFORMATION
  Report Type: 
  Country: None (occurrence: None)
  Receive Date: 20110518
  Receipt Date: 20110509
  Transmission Date: 20111010
  Serious: Yes (Hospitalization)
  Sender: FDA-Public Use
  Company Number: PHHY2011DE40968

PATIENT
  Sex: Male

DRUGS (5)
  1. BELOC [Concomitant]
  2. PANTOPRAZOLE [Concomitant]
  3. ASPIRIN [Concomitant]
     Indication: PLATELET AGGREGATION INHIBITION
  4. GLEEVEC [Suspect]
     Indication: CHRONIC MYELOID LEUKAEMIA
     Dosage: 400 MG, PER DAY
     Route: 048
  5. RAMIPRIL [Concomitant]

REACTIONS (3)
  - THROMBOSIS IN DEVICE [None]
  - DEVICE OCCLUSION [None]
  - MYOCARDIAL INFARCTION [None]
